FAERS Safety Report 22818981 (Version 2)
Quarter: 2024Q2

REPORT INFORMATION
  Report Type: Spontaneous
  Country: US (occurrence: US)
  Receive Date: 20230814
  Receipt Date: 20240405
  Transmission Date: 20240716
  Serious: Yes (Death, Other)
  Sender: FDA-Public Use
  Company Number: US-GLAXOSMITHKLINE-US2023108017

PATIENT

DRUGS (1)
  1. BENLYSTA [Suspect]
     Active Substance: BELIMUMAB
     Indication: Rheumatoid arthritis
     Dosage: UNK, WE (ONCE A WEEK)
     Dates: start: 202210, end: 202303

REACTIONS (3)
  - Systemic lupus erythematosus [Fatal]
  - Disease complication [Fatal]
  - Product use in unapproved indication [Unknown]
